FAERS Safety Report 5585921-9 (Version None)
Quarter: 2008Q1

REPORT INFORMATION
  Report Type: 
  Country: None (occurrence: None)
  Receive Date: 20080109
  Receipt Date: 20071214
  Transmission Date: 20080703
  Serious: No
  Sender: FDA-Public Use
  Company Number: US-BOEHRINGER INGELHEIM PHARMACEUTICALS, INC.-2007-BP-26217BP

PATIENT
  Sex: Male

DRUGS (6)
  1. FLOMAX [Suspect]
     Indication: PELVIC FLOOR MUSCLE WEAKNESS
     Route: 048
     Dates: start: 20071210
  2. CATAPRES [Concomitant]
     Indication: BLOOD PRESSURE INCREASED
     Route: 061
  3. KLONOPIN [Concomitant]
     Indication: ANXIETY
     Route: 048
  4. FOLIC ACID [Concomitant]
     Route: 048
  5. SKELAXIN [Concomitant]
     Indication: MUSCLE RELAXANT THERAPY
     Route: 048
  6. PROTONIX [Concomitant]
     Indication: GASTROINTESTINAL DISORDER
     Route: 048

REACTIONS (1)
  - BLOOD PRESSURE DECREASED [None]
